FAERS Safety Report 7108925-3 (Version None)
Quarter: 2010Q4

REPORT INFORMATION
  Report Type: 
  Country: None (occurrence: None)
  Receive Date: 20101112
  Receipt Date: 20101028
  Transmission Date: 20110411
  Serious: Yes (Life-Threatening, Other)
  Sender: FDA-Public Use
  Company Number: AUR-APL-2010-02708

PATIENT
  Age: 74 Year
  Sex: Female

DRUGS (1)
  1. CEPHALEXIN [Suspect]
     Indication: URINARY TRACT INFECTION

REACTIONS (4)
  - ANAPHYLACTIC REACTION [None]
  - FALL [None]
  - RESPIRATORY ARREST [None]
  - SWOLLEN TONGUE [None]
